FAERS Safety Report 24128881 (Version 1)
Quarter: 2024Q3

REPORT INFORMATION
  Report Type: Report from Study
  Country: US (occurrence: US)
  Receive Date: 20240723
  Receipt Date: 20240723
  Transmission Date: 20241017
  Serious: Yes (Hospitalization)
  Sender: OTSUKA
  Company Number: US-OTSUKA-2024_014310

PATIENT
  Age: 41 Year
  Sex: Female
  Weight: 88 kg

DRUGS (5)
  1. TOLVAPTAN [Suspect]
     Active Substance: TOLVAPTAN
     Indication: Congenital cystic kidney disease
     Dosage: 45 MG, QD (IN THE AM)
     Route: 065
     Dates: start: 20240508
  2. TOLVAPTAN [Suspect]
     Active Substance: TOLVAPTAN
     Dosage: 15 MG, QD (8 HOURS LATER)
     Route: 065
     Dates: start: 20240508
  3. NICOTINE [Concomitant]
     Active Substance: NICOTINE
     Indication: Product used for unknown indication
     Dosage: UNKNOWN (PATCH)
     Route: 065
  4. VITAMIN D2 [Concomitant]
     Active Substance: ERGOCALCIFEROL
     Indication: Product used for unknown indication
     Dosage: 1 DF, QW (50,000 UNIT)
     Route: 048
  5. LISINOPRIL [Concomitant]
     Active Substance: LISINOPRIL
     Indication: Product used for unknown indication
     Dosage: 1 DF, QD
     Route: 048

REACTIONS (33)
  - Pneumonia [Unknown]
  - Sepsis [Unknown]
  - Pyelonephritis [Unknown]
  - Urinary tract infection [Unknown]
  - Suspected COVID-19 [Unknown]
  - Influenza [Unknown]
  - Chills [Unknown]
  - Blood lactic acid decreased [Unknown]
  - Mean cell volume decreased [Not Recovered/Not Resolved]
  - Mean platelet volume increased [Recovering/Resolving]
  - Mean cell haemoglobin decreased [Not Recovered/Not Resolved]
  - Neutrophil count increased [Recovered/Resolved]
  - Blood chloride increased [Unknown]
  - Blood calcium decreased [Unknown]
  - Protein total decreased [Unknown]
  - Blood albumin decreased [Unknown]
  - Blood urea nitrogen/creatinine ratio decreased [Recovering/Resolving]
  - Lymphocyte count decreased [Recovering/Resolving]
  - Blood urea decreased [Unknown]
  - Monocyte count increased [Recovered/Resolved]
  - Lethargy [Unknown]
  - Hiatus hernia [Unknown]
  - Blood potassium decreased [Unknown]
  - White blood cell count increased [Recovered/Resolved]
  - Haematocrit decreased [Unknown]
  - Blood glucose decreased [Unknown]
  - Blood sodium decreased [Recovered/Resolved]
  - Blood alkaline phosphatase increased [Recovered/Resolved]
  - Haemoglobin decreased [Unknown]
  - Pyrexia [Unknown]
  - Blood bilirubin increased [Recovered/Resolved]
  - Pollakiuria [Unknown]
  - Product dose omission issue [Unknown]

NARRATIVE: CASE EVENT DATE: 20240517
